FAERS Safety Report 4703461-3 (Version None)
Quarter: 2005Q2

REPORT INFORMATION
  Report Type: 
  Country: None (occurrence: None)
  Receive Date: 20050629
  Receipt Date: 20050610
  Transmission Date: 20051028
  Serious: Yes (Hospitalization, Other)
  Sender: FDA-Public Use
  Company Number: USA0506100230

PATIENT
  Sex: Female

DRUGS (7)
  1. ZYPREXA [Suspect]
     Indication: DEPRESSION
     Dosage: 5 MG
     Dates: start: 20050101, end: 20050610
  2. NEURONTIN [Concomitant]
  3. TOPROL-XL [Concomitant]
  4. LESCOL (FLUVASTATIN    /01224501/) [Concomitant]
  5. NEXIUM [Concomitant]
  6. REGLAN [Concomitant]
  7. HYOSCYAMINE [Concomitant]

REACTIONS (6)
  - ANAEMIA [None]
  - BLOOD GLUCOSE INCREASED [None]
  - CARDIAC VALVE DISEASE [None]
  - INFECTION [None]
  - SWELLING [None]
  - WEIGHT INCREASED [None]
